FAERS Safety Report 8485898-2 (Version None)
Quarter: 2012Q3

REPORT INFORMATION
  Report Type: 
  Country: None (occurrence: None)
  Receive Date: 20120703
  Receipt Date: 20120621
  Transmission Date: 20120928
  Serious: No
  Sender: FDA-Public Use
  Company Number: US-ASTRAZENECA-2012SE37527

PATIENT
  Age: 43 Year
  Sex: Female

DRUGS (3)
  1. PULMICORT FLEXHALER [Suspect]
     Route: 055
  2. SYMBICORT [Suspect]
     Route: 055
  3. PROVENTIL [Concomitant]

REACTIONS (4)
  - INSOMNIA [None]
  - ADVERSE EVENT [None]
  - DRUG EFFECT DECREASED [None]
  - DRUG DOSE OMISSION [None]
